FAERS Safety Report 8959572 (Version 1)
Quarter: 2012Q4

REPORT INFORMATION
  Report Type: 
  Country: DE (occurrence: DE)
  Receive Date: 20121212
  Receipt Date: 20121212
  Transmission Date: 20130627
  Serious: Yes (Life-Threatening, Other)
  Sender: FDA-Public Use
  Company Number: DE-ROCHE-1146477

PATIENT
  Age: 55 Year
  Sex: Male

DRUGS (4)
  1. MABTHERA [Suspect]
     Indication: RHEUMATOID ARTHRITIS
     Route: 042
     Dates: start: 20110510, end: 201205
  2. MTX [Suspect]
     Indication: RHEUMATOID ARTHRITIS
     Route: 058
     Dates: start: 201106, end: 201206
  3. CICLOSPORIN [Suspect]
     Indication: RHEUMATOID ARTHRITIS
     Route: 065
     Dates: start: 1996, end: 201106
  4. FOLIC ACID [Concomitant]
     Indication: PROPHYLAXIS
     Route: 048
     Dates: start: 201106, end: 201206

REACTIONS (3)
  - Cardiac failure [Unknown]
  - Cardiomyopathy [Recovered/Resolved with Sequelae]
  - Atrial fibrillation [Unknown]
